FAERS Safety Report 24885425 (Version 1)
Quarter: 2025Q1

REPORT INFORMATION
  Report Type: Spontaneous
  Country: US (occurrence: US)
  Receive Date: 20250124
  Receipt Date: 20250124
  Transmission Date: 20250409
  Serious: Yes (Other)
  Sender: GENERICUS
  Company Number: US-GENERICUS, INC.-2024GNR00010

PATIENT
  Sex: Female

DRUGS (1)
  1. TOBRAMYCIN [Suspect]
     Active Substance: TOBRAMYCIN
     Dates: start: 20241123

REACTIONS (9)
  - Deafness [Unknown]
  - Malaise [Unknown]
  - Balance disorder [Unknown]
  - Fall [Unknown]
  - Asthenia [Unknown]
  - Dizziness [Unknown]
  - Sputum increased [Not Recovered/Not Resolved]
  - Cough [Recovering/Resolving]
  - Muscular weakness [Unknown]

NARRATIVE: CASE EVENT DATE: 20241101
